FAERS Safety Report 14482650 (Version 4)
Quarter: 2018Q2

REPORT INFORMATION
  Report Type: Spontaneous
  Country: JP (occurrence: JP)
  Receive Date: 20180203
  Receipt Date: 20180413
  Transmission Date: 20180711
  Serious: Yes (Hospitalization, Other)
  Sender: FDA-Public Use
  Company Number: JP-AMGEN-JPNSP2018015443

PATIENT
  Age: 68 Year
  Sex: Male
  Weight: 84 kg

DRUGS (16)
  1. ONEALFA [Concomitant]
     Active Substance: ALFACALCIDOL
     Dosage: 0.5 MUG, QD
     Route: 065
     Dates: start: 20171214
  2. ALENDRONATE [Concomitant]
     Active Substance: ALENDRONATE SODIUM
     Dosage: UNK
     Route: 065
  3. PURSENNID [Concomitant]
     Active Substance: SENNOSIDES A AND B
     Dosage: 12 MG, QD
     Route: 065
     Dates: start: 20171214
  4. PREDNISOLONE. [Concomitant]
     Active Substance: PREDNISOLONE
     Dosage: 10 MG, QOD AFTER BREAKFAST
     Route: 065
     Dates: start: 20171214
  5. RANMARK [Suspect]
     Active Substance: DENOSUMAB
     Indication: METASTASES TO BONE
     Dosage: UNK, 24 TIMES
     Route: 065
     Dates: start: 20160218
  6. ANETOCAINE [Concomitant]
     Dosage: UNK UNK, QID
     Route: 065
     Dates: start: 20171214
  7. MAGMITT [Concomitant]
     Active Substance: MAGNESIUM OXIDE
     Dosage: 330 MG, TID
     Route: 065
     Dates: start: 20171214
  8. BONALON [Suspect]
     Active Substance: ALENDRONATE SODIUM
     Indication: PRODUCT USED FOR UNKNOWN INDICATION
     Dosage: 35 MG, ONCE EVERY 1 WK
     Route: 065
     Dates: start: 20171214
  9. BEZETON [Concomitant]
     Dosage: 1000 ML, QD
     Route: 065
     Dates: start: 20171214
  10. ZYTIGA [Concomitant]
     Active Substance: ABIRATERONE ACETATE
     Dosage: 1000 MG, QD
     Route: 065
     Dates: start: 20171214
  11. UNISIA [Concomitant]
     Active Substance: AMLODIPINE BESYLATE\CANDESARTAN CILEXETIL
     Dosage: 1 DF, QD
     Route: 065
     Dates: start: 20171214
  12. SODIUM PICOSULFATE [Concomitant]
     Active Substance: SODIUM PICOSULFATE
     Indication: CONSTIPATION
     Dosage: UNK, AS NECESSARY
     Route: 065
     Dates: start: 20171214
  13. DENOTAS [Concomitant]
     Active Substance: CALCIUM CARBONATE\CHOLECALCIFEROL\MAGNESIUM CARBONATE
     Dosage: 2 DF, QD AFTER BREAKFAST
     Route: 065
     Dates: start: 20171214
  14. ISODINE [Concomitant]
     Active Substance: POVIDONE-IODINE
     Indication: THERAPEUTIC GARGLE
     Dosage: UNK, TID
     Route: 065
     Dates: start: 20171214
  15. TAMSULOSIN HYDROCHLORIDE. [Concomitant]
     Active Substance: TAMSULOSIN HYDROCHLORIDE
     Dosage: 0.2 MG, QD AFTER BREAKFAST
     Route: 065
     Dates: start: 20171214
  16. OMEPRAZOLE. [Concomitant]
     Active Substance: OMEPRAZOLE
     Dosage: 10 MG, QD
     Route: 065
     Dates: start: 20171214

REACTIONS (2)
  - Tooth disorder [Unknown]
  - Osteomyelitis [Recovered/Resolved]

NARRATIVE: CASE EVENT DATE: 20180121
